FAERS Safety Report 4771720-4 (Version None)
Quarter: 2005Q3

REPORT INFORMATION
  Report Type: 
  Country: None (occurrence: None)
  Receive Date: 20050916
  Receipt Date: 20050912
  Transmission Date: 20060218
  Serious: Yes (Other)
  Sender: FDA-Public Use
  Company Number: PHFR2005GB03031

PATIENT
  Age: 48 Year
  Sex: Female

DRUGS (9)
  1. VALSARTAN [Suspect]
     Indication: HYPERTENSION
     Dosage: 80MG/DAY
     Route: 048
     Dates: start: 20050607, end: 20050719
  2. LISINOPRIL [Concomitant]
     Indication: HYPERTENSION
     Dosage: 5MG/DAY
     Route: 048
     Dates: start: 20041028, end: 20050607
  3. SILKIS [Concomitant]
     Route: 061
     Dates: start: 20050801
  4. ATENOLOL [Concomitant]
     Indication: HYPERTENSION
     Dosage: 50MG/DAY
     Route: 048
     Dates: start: 20050518
  5. AMITRIPTYLINE HCL [Concomitant]
     Indication: PAIN
     Dosage: 75MG/DAY
     Route: 048
     Dates: start: 20020422
  6. GABAPENTIN [Concomitant]
     Route: 065
  7. BACLOFEN [Concomitant]
     Route: 065
  8. TRAMADOL [Concomitant]
     Route: 065
  9. PAROXETINE [Concomitant]
     Route: 065

REACTIONS (1)
  - PSORIASIS [None]
